FAERS Safety Report 21503416 (Version 2)
Quarter: 2023Q1

REPORT INFORMATION
  Report Type: Report from Study
  Country: US (occurrence: US)
  Receive Date: 20221025
  Receipt Date: 20230130
  Transmission Date: 20230417
  Serious: No
  Sender: FDA-Public Use
  Company Number: US-ABBVIE-4146929

PATIENT
  Sex: Female

DRUGS (1)
  1. HUMIRA [Suspect]
     Active Substance: ADALIMUMAB
     Indication: Hidradenitis
     Dosage: CITRATE FREE, ONSET DATE FOR HIDRADENITIS SUPPURATIVA FLARE UP: DEC 2022 AND SWELLING UNDER RIGHT...
     Route: 058
     Dates: start: 20221227

REACTIONS (2)
  - Hidradenitis [Recovered/Resolved]
  - Swelling [Recovering/Resolving]
